FAERS Safety Report 8721770 (Version 3)
Quarter: 2012Q4

REPORT INFORMATION
  Report Type: 
  Country: US (occurrence: US)
  Receive Date: 20120814
  Receipt Date: 20121106
  Transmission Date: 20130627
  Serious: Yes (Other)
  Sender: FDA-Public Use
  Company Number: US-PFIZER INC-2012197608

PATIENT
  Sex: Female

DRUGS (1)
  1. FELDENE [Suspect]
     Dosage: 20 mg, UNK

REACTIONS (1)
  - Dermatitis bullous [Unknown]
